FAERS Safety Report 4905385-5 (Version None)
Quarter: 2006Q1

REPORT INFORMATION
  Report Type: 
  Country: None (occurrence: None)
  Receive Date: 20060207
  Receipt Date: 20060207
  Transmission Date: 20060701
  Serious: Yes (Hospitalization)
  Sender: FDA-Public Use
  Company Number: None

PATIENT
  Sex: Male
  Weight: 86.1834 kg

DRUGS (2)
  1. VELCADE [Suspect]
     Indication: TONSIL CANCER
     Dosage: 1.44 MG   DAYS 1,4,8, 11  Q3W   IV
     Route: 042
     Dates: start: 20060103, end: 20060127
  2. CISPLATIN [Suspect]
     Indication: TONSIL CANCER
     Dosage: 61.8 MG  WEEKLY IV
     Route: 042
     Dates: start: 20060103, end: 20060124

REACTIONS (4)
  - DEHYDRATION [None]
  - NAUSEA [None]
  - PNEUMONIA [None]
  - VOMITING [None]
